FAERS Safety Report 26105296 (Version 2)
Quarter: 2025Q4

REPORT INFORMATION
  Report Type: Spontaneous
  Country: JP (occurrence: JP)
  Receive Date: 20251201
  Receipt Date: 20251212
  Transmission Date: 20260118
  Serious: Yes (Death, Other)
  Sender: JOHNSON AND JOHNSON
  Company Number: JP-JNJFOC-20251175118

PATIENT
  Age: 7 Decade
  Sex: Male

DRUGS (2)
  1. TALVEY [Suspect]
     Active Substance: TALQUETAMAB-TGVS
     Indication: Plasma cell myeloma refractory
     Dosage: DOSE UNKNOWN
     Route: 058
     Dates: start: 20251107, end: 202511
  2. TALVEY [Suspect]
     Active Substance: TALQUETAMAB-TGVS
     Dosage: DOSE AND DOSE FREQUENCY UNKNOWN
     Route: 058

REACTIONS (2)
  - Plasma cell myeloma [Fatal]
  - Tumour lysis syndrome [Recovering/Resolving]

NARRATIVE: CASE EVENT DATE: 20251118
